FAERS Safety Report 5161999-1 (Version None)
Quarter: 2006Q4

REPORT INFORMATION
  Report Type: 
  Country: None (occurrence: None)
  Receive Date: 20061121
  Receipt Date: 20061108
  Transmission Date: 20070319
  Serious: Yes (Hospitalization, Disabling, Other)
  Sender: FDA-Public Use
  Company Number: 2006101771

PATIENT
  Age: 65 Year
  Sex: Female
  Weight: 110 kg

DRUGS (1)
  1. EPIRUBICIN [Suspect]
     Indication: BREAST CANCER
     Dosage: INTRAVENOUS
     Route: 042
     Dates: end: 20060101

REACTIONS (6)
  - DRUG INTOLERANCE [None]
  - ERYTHEMA [None]
  - EXTRAVASATION [None]
  - IMPAIRED HEALING [None]
  - INFECTION [None]
  - NECROSIS [None]
